FAERS Safety Report 4925256-8 (Version None)
Quarter: 2006Q1

REPORT INFORMATION
  Report Type: 
  Country: None (occurrence: None)
  Receive Date: 20060228
  Receipt Date: 20060220
  Transmission Date: 20060701
  Serious: Yes (Hospitalization)
  Sender: FDA-Public Use
  Company Number: NSADSS2003007732

PATIENT
  Sex: Female
  Weight: 57.5 kg

DRUGS (8)
  1. REMICADE [Suspect]
     Indication: RHEUMATOID ARTHRITIS
     Route: 042
  2. PREDNISONE [Concomitant]
     Indication: RHEUMATOID ARTHRITIS
     Route: 048
  3. HYDROXYCHLOROQUINE SULFATE [Concomitant]
     Indication: RHEUMATOID ARTHRITIS
     Route: 048
  4. PAXIL [Concomitant]
     Route: 048
  5. LOSEC [Concomitant]
     Route: 048
  6. FOLIC ACID [Concomitant]
     Route: 048
  7. PANTOPRAZOLE SODIUM [Concomitant]
     Route: 048
  8. ZOPICLONE [Concomitant]
     Route: 048

REACTIONS (7)
  - FALL [None]
  - FEMORAL NECK FRACTURE [None]
  - FIBULA FRACTURE [None]
  - HIP FRACTURE [None]
  - PAIN IN EXTREMITY [None]
  - PULMONARY FIBROSIS [None]
  - ULNA FRACTURE [None]
